FAERS Safety Report 17828311 (Version 11)
Quarter: 2025Q2

REPORT INFORMATION
  Report Type: Spontaneous
  Country: CA (occurrence: CA)
  Receive Date: 20200527
  Receipt Date: 20250626
  Transmission Date: 20250716
  Serious: Yes (Other)
  Sender: Haleon PLC
  Company Number: CA-GLAXOSMITHKLINE-CA2018GSK103256

PATIENT
  Age: 60 Year
  Sex: Male

DRUGS (38)
  1. FLUTICASONE PROPIONATE [Suspect]
     Active Substance: FLUTICASONE PROPIONATE
     Indication: Asthma
  2. FLUTICASONE PROPIONATE [Suspect]
     Active Substance: FLUTICASONE PROPIONATE
  3. PREDNISONE [Suspect]
     Active Substance: PREDNISONE
     Indication: Product used for unknown indication
     Dosage: 5 MG, 1D
     Route: 048
  4. PREDNISONE [Suspect]
     Active Substance: PREDNISONE
  5. PREDNISONE [Suspect]
     Active Substance: PREDNISONE
  6. IMURAN [Suspect]
     Active Substance: AZATHIOPRINE
     Indication: Product used for unknown indication
  7. AZATHIOPRINE [Suspect]
     Active Substance: AZATHIOPRINE
     Indication: Product used for unknown indication
  8. SPIRIVA [Suspect]
     Active Substance: TIOTROPIUM BROMIDE MONOHYDRATE
     Indication: Product used for unknown indication
     Dosage: 2 PUFF(S), QD
  9. MOMETASONE FUROATE [Suspect]
     Active Substance: MOMETASONE FUROATE
     Indication: Product used for unknown indication
  10. VENTOLIN HFA [Suspect]
     Active Substance: ALBUTEROL SULFATE
     Indication: Vasculitis
  11. VENTOLIN HFA [Suspect]
     Active Substance: ALBUTEROL SULFATE
     Indication: Eosinophilia
  12. ZENHALE [Suspect]
     Active Substance: FORMOTEROL FUMARATE\MOMETASONE FUROATE
     Indication: Product used for unknown indication
     Dosage: UNK UNK, QID 100/5UG
  13. ZENHALE [Suspect]
     Active Substance: FORMOTEROL FUMARATE\MOMETASONE FUROATE
     Dosage: 2 PUFF(S), BID
  14. CRESTOR [Suspect]
     Active Substance: ROSUVASTATIN CALCIUM
     Indication: Product used for unknown indication
  15. MOMETASONE [Suspect]
     Active Substance: MOMETASONE
     Indication: Product used for unknown indication
  16. GLYCOPYRROLATE [Suspect]
     Active Substance: GLYCOPYRROLATE
     Indication: Product used for unknown indication
     Dosage: 1 PUFF(S), QD, 50UG PER INHALATION
  17. SYMBICORT [Suspect]
     Active Substance: BUDESONIDE\FORMOTEROL FUMARATE DIHYDRATE
     Indication: Product used for unknown indication
     Dosage: 2 PUFF(S), BID
  18. PREDNISONE ACETATE [Suspect]
     Active Substance: PREDNISONE ACETATE
     Indication: Product used for unknown indication
  19. PREDNISONE ACETATE [Suspect]
     Active Substance: PREDNISONE ACETATE
  20. PREDNISONE ACETATE [Suspect]
     Active Substance: PREDNISONE ACETATE
  21. PREDNISONE ACETATE [Suspect]
     Active Substance: PREDNISONE ACETATE
  22. PREDNISONE ACETATE [Suspect]
     Active Substance: PREDNISONE ACETATE
  23. PREDNISONE ACETATE [Suspect]
     Active Substance: PREDNISONE ACETATE
  24. NUCALA [Suspect]
     Active Substance: MEPOLIZUMAB
     Indication: Asthma
     Route: 042
  25. NUCALA [Suspect]
     Active Substance: MEPOLIZUMAB
     Route: 042
  26. ALBUTEROL SULFATE [Suspect]
     Active Substance: ALBUTEROL SULFATE
     Indication: Product used for unknown indication
  27. ASPIRIN [Suspect]
     Active Substance: ASPIRIN
     Indication: Product used for unknown indication
  28. ASPIRIN [Suspect]
     Active Substance: ASPIRIN
     Indication: Product used for unknown indication
  29. BUDESONIDE [Suspect]
     Active Substance: BUDESONIDE
     Indication: Product used for unknown indication
  30. BUDESONIDE [Suspect]
     Active Substance: BUDESONIDE
  31. BUDESONIDE [Suspect]
     Active Substance: BUDESONIDE
  32. BUDESONIDE [Suspect]
     Active Substance: BUDESONIDE
  33. ROSUVASTATIN CALCIUM [Suspect]
     Active Substance: ROSUVASTATIN CALCIUM
     Indication: Hypersensitivity
  34. ROSUVASTATIN CALCIUM [Suspect]
     Active Substance: ROSUVASTATIN CALCIUM
     Indication: Vasculitis
  35. ROSUVASTATIN CALCIUM [Suspect]
     Active Substance: ROSUVASTATIN CALCIUM
     Route: 048
  36. ROSUVASTATIN CALCIUM [Suspect]
     Active Substance: ROSUVASTATIN CALCIUM
  37. ROSUVASTATIN CALCIUM [Suspect]
     Active Substance: ROSUVASTATIN CALCIUM
  38. ROSUVASTATIN CALCIUM [Suspect]
     Active Substance: ROSUVASTATIN CALCIUM

REACTIONS (19)
  - Eosinophilic granulomatosis with polyangiitis [Recovered/Resolved]
  - Visual impairment [Recovered/Resolved]
  - Haemoptysis [Recovered/Resolved]
  - Therapeutic product effect incomplete [Recovered/Resolved]
  - Drug dependence [Recovered/Resolved]
  - Cough [Recovered/Resolved]
  - Gastrooesophageal reflux disease [Recovered/Resolved]
  - Paraesthesia [Recovered/Resolved]
  - Vasculitis [Recovered/Resolved]
  - Full blood count abnormal [Recovered/Resolved]
  - Eosinophil count increased [Recovered/Resolved]
  - Disease recurrence [Recovered/Resolved]
  - Dyspnoea [Recovered/Resolved]
  - Hypoaesthesia [Recovered/Resolved]
  - Productive cough [Recovered/Resolved]
  - Neuropathy peripheral [Recovered/Resolved]
  - Upper respiratory tract infection [Recovered/Resolved]
  - Asthma [Recovered/Resolved]
  - Malaise [Recovered/Resolved]

NARRATIVE: CASE EVENT DATE: 20171214
